FAERS Safety Report 7315815-X (Version None)
Quarter: 2011Q1

REPORT INFORMATION
  Report Type: 
  Country: None (occurrence: None)
  Receive Date: 20110225
  Receipt Date: 20110221
  Transmission Date: 20110831
  Serious: Yes (Life-Threatening)
  Sender: FDA-Public Use
  Company Number: FR-GENZYME-THYM-1002316

PATIENT

DRUGS (5)
  1. THYMOGLOBULIN [Suspect]
     Dosage: 325 MG, ONCE
     Route: 042
     Dates: start: 20110220, end: 20110220
  2. CORTICOSTEROID NOS [Concomitant]
     Indication: PREMEDICATION
     Dosage: 2 MG/KG, QD
  3. CICLOSPORIN [Concomitant]
     Indication: PRODUCT USED FOR UNKNOWN INDICATION
     Dosage: UNK UNK, UNK
     Route: 042
  4. THYMOGLOBULIN [Suspect]
     Indication: BONE MARROW FAILURE
     Dosage: 325 MG, ONCE
     Dates: start: 20110219, end: 20110219
  5. POLARAMINE [Concomitant]
     Indication: PREMEDICATION

REACTIONS (4)
  - DRUG ADMINISTRATION ERROR [None]
  - BLOOD PRESSURE DECREASED [None]
  - OVERDOSE [None]
  - GENERALISED ERYTHEMA [None]
